FAERS Safety Report 8467883-X (Version None)
Quarter: 2012Q2

REPORT INFORMATION
  Report Type: 
  Country: None (occurrence: None)
  Receive Date: 20120626
  Receipt Date: 20120618
  Transmission Date: 20120825
  Serious: Yes (Other)
  Sender: FDA-Public Use
  Company Number: PT-ROCHE-1075538

PATIENT
  Age: 34 Week
  Sex: Female

DRUGS (1)
  1. RANIBIZUMAB [Suspect]
     Indication: RETINOPATHY OF PREMATURITY
     Dosage: BOTH EYES, INDICATION REPORTED AS AGGRESSIVE POSTERIOR RETINOPATHY OF PREMATURITY
     Route: 050

REACTIONS (1)
  - RETINAL HAEMORRHAGE [None]
